FAERS Safety Report 9146221 (Version 2)
Quarter: 2013Q2

REPORT INFORMATION
  Report Type: Spontaneous
  Country: US (occurrence: US)
  Receive Date: 20130307
  Receipt Date: 20130401
  Transmission Date: 20140414
  Serious: Yes (Other)
  Sender: FDA-Public Use
  Company Number: US-PFIZER INC-2013073479

PATIENT
  Age: 23 Year
  Sex: Male
  Weight: 81.63 kg

DRUGS (2)
  1. BENEFIX [Suspect]
     Indication: FACTOR IX DEFICIENCY
     Dosage: 35 IUS/KG, 2X/WEEK
  2. BENEFIX [Suspect]
     Indication: PROPHYLAXIS
     Dosage: 50 IU/KG, AS NEEDED

REACTIONS (3)
  - Haemorrhage [Unknown]
  - Off label use [Unknown]
  - Joint injury [Unknown]
